FAERS Safety Report 9871916 (Version 2)
Quarter: 2014Q1

REPORT INFORMATION
  Report Type: Spontaneous
  Country: US (occurrence: US)
  Receive Date: 20140205
  Receipt Date: 20140205
  Transmission Date: 20141002
  Serious: No
  Sender: FDA-Public Use
  Company Number: US-ALLERGAN-1305356US

PATIENT
  Age: 37 Year
  Sex: Female

DRUGS (4)
  1. BOTOX COSMETIC [Suspect]
     Indication: SKIN WRINKLING
     Dosage: 15 UNITS, SINGLE
     Route: 030
     Dates: start: 20130325, end: 20130325
  2. BOTOX COSMETIC [Suspect]
     Indication: SKIN WRINKLING
     Dosage: 15 UNITS, SINGLE
     Route: 030
     Dates: start: 201210, end: 201210
  3. RADIESSE [Suspect]
     Indication: PRODUCT USED FOR UNKNOWN INDICATION
     Dosage: UNK
     Dates: start: 20130325, end: 20130325
  4. RADIESSE [Suspect]
     Dosage: UNK
     Dates: start: 201210, end: 201210

REACTIONS (7)
  - Herpes virus infection [Recovered/Resolved]
  - Skin necrosis [Recovered/Resolved]
  - Rash pustular [Recovered/Resolved]
  - Facial pain [Recovered/Resolved]
  - Erythema [Recovered/Resolved]
  - Swelling face [Recovered/Resolved]
  - Erythema [Recovered/Resolved]
